FAERS Safety Report 11176387 (Version 1)
Quarter: 2015Q2

REPORT INFORMATION
  Report Type: Spontaneous
  Country: JP (occurrence: JP)
  Receive Date: 20150610
  Receipt Date: 20150610
  Transmission Date: 20150821
  Serious: Yes (Other)
  Sender: FDA-Public Use
  Company Number: JP-AMGEN-JPNSP2015055947

PATIENT
  Age: 67 Year
  Sex: Female

DRUGS (2)
  1. ENBREL [Suspect]
     Active Substance: ETANERCEPT
     Dosage: 25 MG, ONCE EVERY 5 DAYS
     Route: 058
  2. ENBREL [Suspect]
     Active Substance: ETANERCEPT
     Indication: PRODUCT USED FOR UNKNOWN INDICATION
     Dosage: 25 MG, WEEKLY
     Route: 058

REACTIONS (4)
  - Rheumatoid arthritis [Unknown]
  - Cough [Unknown]
  - Condition aggravated [Unknown]
  - Asthma [Unknown]

NARRATIVE: CASE EVENT DATE: 201503
